FAERS Safety Report 16837882 (Version 1)
Quarter: 2019Q3

REPORT INFORMATION
  Report Type: Report from Study
  Country: BR (occurrence: BR)
  Receive Date: 20190923
  Receipt Date: 20190923
  Transmission Date: 20191005
  Serious: Yes (Other)
  Sender: FDA-Public Use
  Company Number: BR-EMD SERONO-E2B_80069193

PATIENT
  Age: 29 Year
  Sex: Female

DRUGS (5)
  1. MERCILON [Concomitant]
     Active Substance: DESOGESTREL\ETHINYL ESTRADIOL
     Indication: PRODUCT USED FOR UNKNOWN INDICATION
     Dosage: DESOGESTREL 150 MCG+ ETINILESTRADIOL 20 MCG
  2. OMEGA 3                            /01334101/ [Concomitant]
     Active Substance: OMEGA-3 FATTY ACIDS
     Indication: PRODUCT USED FOR UNKNOWN INDICATION
  3. REBIF [Suspect]
     Active Substance: INTERFERON BETA-1A
     Indication: MULTIPLE SCLEROSIS
     Dosage: 2 DOSES OF REBIF 22 MCG
     Route: 058
     Dates: start: 20170331, end: 201906
  4. VITAMIN D                          /00107901/ [Concomitant]
     Active Substance: ERGOCALCIFEROL
     Indication: PRODUCT USED FOR UNKNOWN INDICATION
     Dosage: 1.000/DROPS
  5. BIO-MANGUINHOS BETAINTERFERONA 1A 44 MCG [Suspect]
     Active Substance: INTERFERON BETA-1A
     Indication: MULTIPLE SCLEROSIS
     Dosage: THERAPY START DATEL 28 JUN 2019
     Route: 058

REACTIONS (20)
  - Pyrexia [Recovering/Resolving]
  - Dengue fever [Recovering/Resolving]
  - Cholecystectomy [Unknown]
  - Injection site erythema [Recovering/Resolving]
  - Injection site pain [Recovering/Resolving]
  - Injection site discolouration [Unknown]
  - Pain [Recovering/Resolving]
  - Arthralgia [Recovering/Resolving]
  - Injection site bruising [Recovering/Resolving]
  - Peripheral coldness [Recovering/Resolving]
  - Central nervous system lesion [Unknown]
  - Chest discomfort [Recovering/Resolving]
  - Injection site pruritus [Unknown]
  - Dysphonia [Unknown]
  - Injection site haematoma [Unknown]
  - Injection site mass [Recovered/Resolved]
  - Injection site haemorrhage [Unknown]
  - Injection site warmth [Unknown]
  - Dyspnoea [Recovering/Resolving]
  - Wrong technique in product usage process [Unknown]

NARRATIVE: CASE EVENT DATE: 2017
